FAERS Safety Report 7852037-8 (Version None)
Quarter: 2011Q3

REPORT INFORMATION
  Report Type: 
  Country: None (occurrence: None)
  Receive Date: 20110912
  Receipt Date: 20110603
  Transmission Date: 20111222
  Serious: No
  Sender: FDA-Public Use
  Company Number: TH-2011-00164

PATIENT
  Age: 49 Year
  Sex: Female
  Weight: 109 kg

DRUGS (18)
  1. TRUVADA [Concomitant]
  2. VITAMIN D [Concomitant]
  3. OMEPRAZOLE [Concomitant]
  4. NASONEX [Concomitant]
  5. EPIPEN [Concomitant]
  6. LEXIVA (FISAMPRENAVIR CALCIUM) [Concomitant]
  7. VESICARE [Concomitant]
  8. CALCIUM CARBONATE [Concomitant]
  9. LOVAZA [Concomitant]
  10. PROAIR (FLUTICASONE PROPIONATE) [Concomitant]
  11. FLUTICASONE CREAM (FLUTICASONE) [Concomitant]
  12. VASOTEC [Concomitant]
  13. XANAX [Concomitant]
  14. METFORMIN HCL [Concomitant]
  15. SINGULAIR [Concomitant]
  16. NORVIR [Concomitant]
  17. EGRIFTA [Suspect]
     Indication: LIPOATROPHY
     Dosage: 1 IN 1 D
     Dates: start: 20110331, end: 20110516
  18. ALLEGRA [Concomitant]

REACTIONS (4)
  - MUSCLE SPASMS [None]
  - NAUSEA [None]
  - DIZZINESS [None]
  - MYALGIA [None]
